FAERS Safety Report 19292077 (Version 1)
Quarter: 2021Q2

REPORT INFORMATION
  Report Type: Spontaneous
  Country: US (occurrence: US)
  Receive Date: 20210524
  Receipt Date: 20210524
  Transmission Date: 20210717
  Serious: No
  Sender: FDA-Public Use
  Company Number: US-TEVA-2021-US-1911420

PATIENT
  Age: 20 Year
  Sex: Female

DRUGS (1)
  1. SPRINTEC [Suspect]
     Active Substance: ETHINYL ESTRADIOL\NORGESTIMATE
     Dosage: ABOUT 1.5 MONTHS
     Route: 065
     Dates: start: 2021

REACTIONS (5)
  - Diarrhoea [Unknown]
  - Headache [Unknown]
  - Abdominal pain upper [Unknown]
  - Dysstasia [Unknown]
  - Vomiting [Unknown]

NARRATIVE: CASE EVENT DATE: 20210505
